FAERS Safety Report 6582805-4 (Version None)
Quarter: 2010Q1

REPORT INFORMATION
  Report Type: 
  Country: None (occurrence: None)
  Receive Date: 20100216
  Receipt Date: 20100203
  Transmission Date: 20100710
  Serious: Yes (Other)
  Sender: FDA-Public Use
  Company Number: FR-PFIZER INC-2010014745

PATIENT

DRUGS (1)
  1. ZYVOXID [Suspect]

REACTIONS (1)
  - PLATELET COUNT INCREASED [None]
